FAERS Safety Report 22278642 (Version 1)
Quarter: 2023Q2

REPORT INFORMATION
  Report Type: Spontaneous
  Country: CA (occurrence: CA)
  Receive Date: 20230503
  Receipt Date: 20230503
  Transmission Date: 20230721
  Serious: Yes (Other)
  Sender: FDA-Public Use
  Company Number: CA-CELLTRION INC.-2022CA012278

PATIENT

DRUGS (8)
  1. INFLECTRA [Suspect]
     Active Substance: INFLIXIMAB-DYYB
     Indication: Rheumatoid arthritis
     Dosage: 375 MG, INDUCTION: 0,2,6 WEEKS MAINTENANCE: EVERY 8 WEEKS FOR 12 MONTHS
     Route: 042
     Dates: start: 20210630, end: 20230216
  2. INFLECTRA [Suspect]
     Active Substance: INFLIXIMAB-DYYB
     Dosage: 375 MG, INDUCTION: 0,2,6 WEEKSMAINTENANCE: EVERY 8 WEEKS FOR 12 MONTHS
     Route: 042
     Dates: start: 20220712
  3. INFLECTRA [Suspect]
     Active Substance: INFLIXIMAB-DYYB
     Dosage: 375 MG, INDUCTION: 0,2,6 WEEKS MAINTENANCE: EVERY 8 WEEKS FOR 12 MONTHS
     Route: 042
     Dates: start: 20220907
  4. INFLECTRA [Suspect]
     Active Substance: INFLIXIMAB-DYYB
     Dosage: 5MG/KG EVERY 8 WEEKS
     Route: 042
  5. INFLECTRA [Suspect]
     Active Substance: INFLIXIMAB-DYYB
     Dosage: 5MG/KG EVERY 8 WEEKS
     Route: 042
     Dates: start: 20230216
  6. INFLECTRA [Suspect]
     Active Substance: INFLIXIMAB-DYYB
     Dosage: 352.5 MG, 5MG/KG EVERY 6 WEEKS (5MG/KG EVERY 6 WEEKS)
     Route: 042
     Dates: start: 20230316
  7. ETANERCEPT [Concomitant]
     Active Substance: ETANERCEPT
     Dosage: 1 DF, DOSAGE INFORMATION NOT AVAILABLE
  8. METHOTREXATE [Concomitant]
     Active Substance: METHOTREXATE
     Dosage: 1 DF, DOSAGE INFORMATION NOT AVAILABLE

REACTIONS (7)
  - Pneumonia bacterial [Not Recovered/Not Resolved]
  - Drug level decreased [Unknown]
  - Drug specific antibody present [Unknown]
  - Off label use [Unknown]
  - Off label use [Unknown]
  - Off label use [Unknown]
  - Intentional product use issue [Unknown]

NARRATIVE: CASE EVENT DATE: 20210630
